FAERS Safety Report 16923330 (Version 1)
Quarter: 2019Q4

REPORT INFORMATION
  Report Type: Spontaneous
  Country: DE (occurrence: DE)
  Receive Date: 20191016
  Receipt Date: 20191016
  Transmission Date: 20200122
  Serious: Yes (Hospitalization)
  Sender: FDA-Public Use
  Company Number: DE-TEVA-2019-DE-1121480

PATIENT
  Age: 15 Month
  Sex: Male
  Weight: 9 kg

DRUGS (6)
  1. OLYNTH [Concomitant]
     Active Substance: XYLOMETAZOLINE HYDROCHLORIDE
     Indication: PYREXIA
     Dates: start: 20190605, end: 20190610
  2. ZYMAFLUOR [Concomitant]
     Active Substance: SODIUM FLUORIDE
  3. AMOXICILLIN SAFT [Suspect]
     Active Substance: AMOXICILLIN
     Indication: EAR INFECTION
     Dosage: DAILY DOSE: 10 ML MILLILITRE(S) EVERY DAYS 2 SEPARATED DOSES 10 ML
     Route: 048
     Dates: start: 20190607, end: 20190609
  4. INFECTOOPTICEF [Suspect]
     Active Substance: CEFIXIME
     Indication: EAR INFECTION
     Dosage: DAILY DOSE: 10 ML MILLILITRE(S) EVERY DAYS 2 SEPARATED DOSES
     Route: 048
     Dates: start: 20190609, end: 20190610
  5. NUROFEN [Concomitant]
     Active Substance: IBUPROFEN
     Indication: PYREXIA
     Dates: start: 20190605, end: 20190610
  6. PARACETAMOL [Concomitant]
     Active Substance: ACETAMINOPHEN
     Indication: PYREXIA
     Dates: start: 20190605, end: 20190610

REACTIONS (2)
  - Haematochezia [Unknown]
  - Mucous stools [Unknown]

NARRATIVE: CASE EVENT DATE: 20190610
